FAERS Safety Report 4695566-0 (Version None)
Quarter: 2005Q2

REPORT INFORMATION
  Report Type: 
  Country: None (occurrence: None)
  Receive Date: 20050608
  Receipt Date: 20050209
  Transmission Date: 20051028
  Serious: No
  Sender: FDA-Public Use
  Company Number: A03200500416

PATIENT
  Age: 64 Year
  Sex: Female
  Weight: 75.2971 kg

DRUGS (16)
  1. ELOXATIN [Suspect]
     Indication: COLORECTAL CANCER
     Dosage: 200 MG Q2W - INTRAVENOUS NOS
     Route: 042
     Dates: start: 20050113, end: 20050113
  2. FLUOROURACIL [Concomitant]
  3. LEUCOVORIN [Concomitant]
  4. BEVACIZUMAB [Concomitant]
  5. PALONOSETRON [Concomitant]
  6. DEXAMETHASONE [Concomitant]
  7. MAGNESIUM [Concomitant]
  8. CALCIUM GLUCONATE [Concomitant]
  9. SERTRALINE HYDROCHLORIDE [Concomitant]
  10. LORAZEPAM [Concomitant]
  11. PANTOPRAZOLE SODIUM [Concomitant]
  12. TYLENOL W/ CODEINE NO. 3 [Concomitant]
  13. NAPROXEN [Concomitant]
  14. FENTANYL [Concomitant]
  15. METOCLOPRAMIDE [Concomitant]
  16. POTASSIUM CHLORIDE [Concomitant]

REACTIONS (5)
  - BLOOD PRESSURE INCREASED [None]
  - COORDINATION ABNORMAL [None]
  - DYSARTHRIA [None]
  - DYSPNOEA [None]
  - GAIT DISTURBANCE [None]
